FAERS Safety Report 7782054-8 (Version None)
Quarter: 2011Q3

REPORT INFORMATION
  Report Type: 
  Country: None (occurrence: None)
  Receive Date: 20110927
  Receipt Date: 20110922
  Transmission Date: 20111222
  Serious: Yes (Other)
  Sender: FDA-Public Use
  Company Number: US-BAYER-2011-090135

PATIENT
  Sex: Female

DRUGS (3)
  1. AVELOX [Suspect]
     Indication: BRONCHITIS
     Dosage: 400 MG, QD
     Route: 048
     Dates: start: 20110429, end: 20110429
  2. ACETAMINOPHEN [Concomitant]
  3. ALLRX [Concomitant]

REACTIONS (5)
  - MUSCLE TIGHTNESS [None]
  - VOMITING [None]
  - DIZZINESS [None]
  - FEELING HOT [None]
  - HYPOTONIA [None]
